FAERS Safety Report 22605273 (Version 1)
Quarter: 2023Q2

REPORT INFORMATION
  Report Type: Spontaneous
  Country: CN (occurrence: CN)
  Receive Date: 20230615
  Receipt Date: 20230615
  Transmission Date: 20230722
  Serious: Yes (Other)
  Sender: FDA-Public Use
  Company Number: CN-PFIZER INC-PV202300103390

PATIENT
  Age: 7 Year
  Sex: Female
  Weight: 35 kg

DRUGS (2)
  1. ZITHROMAX [Suspect]
     Active Substance: AZITHROMYCIN DIHYDRATE
     Indication: Tonsillitis bacterial
     Dosage: 0.35 G, 1X/DAY
     Route: 041
     Dates: start: 20230520, end: 20230526
  2. DEXTROSE\SODIUM CHLORIDE [Concomitant]
     Active Substance: DEXTROSE\SODIUM CHLORIDE
     Indication: Vehicle solution use
     Dosage: 350 ML, 1X/DAY
     Route: 041
     Dates: start: 20230520, end: 20230526

REACTIONS (4)
  - Rash erythematous [Recovered/Resolved]
  - Pruritus [Recovered/Resolved]
  - Off label use [Unknown]
  - Off label use [Unknown]

NARRATIVE: CASE EVENT DATE: 20230520
